FAERS Safety Report 6072217-4 (Version None)
Quarter: 2009Q1

REPORT INFORMATION
  Report Type: 
  Country: None (occurrence: None)
  Receive Date: 20090206
  Receipt Date: 20090206
  Transmission Date: 20090719
  Serious: No
  Sender: FDA-Public Use
  Company Number: None

PATIENT
  Age: 53 Year
  Sex: Female
  Weight: 70.3075 kg

DRUGS (2)
  1. LESCOL [Suspect]
     Indication: BLOOD CHOLESTEROL INCREASED
     Dosage: 20 INCREASED TO 40 DAILY
     Dates: start: 20050513, end: 20080725
  2. LIPITOR [Suspect]
     Dosage: 20 DAILY
     Dates: start: 20080904, end: 20081215

REACTIONS (7)
  - BLOOD TEST ABNORMAL [None]
  - DIVERTICULITIS [None]
  - FALL [None]
  - INTESTINAL FUNCTIONAL DISORDER [None]
  - MUSCLE INJURY [None]
  - MUSCULAR WEAKNESS [None]
  - PAIN IN EXTREMITY [None]
